FAERS Safety Report 24258375 (Version 1)
Quarter: 2024Q3

REPORT INFORMATION
  Report Type: Spontaneous
  Country: US (occurrence: US)
  Receive Date: 20240828
  Receipt Date: 20240828
  Transmission Date: 20241017
  Serious: No
  Sender: MERCK
  Company Number: US-009507513-2407USA015077

PATIENT
  Sex: Female
  Weight: 49.9 kg

DRUGS (7)
  1. WINREVAIR [Suspect]
     Active Substance: SOTATERCEPT-CSRK
     Indication: Product used for unknown indication
     Dosage: UNK
     Route: 058
  2. REMODULIN [Concomitant]
     Active Substance: TREPROSTINIL
     Indication: Pulmonary arterial hypertension
     Dosage: 0.07 MICROGRAM PER KILOGRAM, CONTINUOUS
     Route: 058
  3. TADALAFIL [Concomitant]
     Active Substance: TADALAFIL
  4. TYLENOL [Concomitant]
     Active Substance: ACETAMINOPHEN
  5. OPSUMIT [Concomitant]
     Active Substance: MACITENTAN
  6. FLUBLOK QUADRIVALENT NOS [Concomitant]
     Active Substance: INFLUENZA VIRUS VACCINE
  7. OXYGEN [Concomitant]
     Active Substance: OXYGEN

REACTIONS (1)
  - Product use complaint [Unknown]
